FAERS Safety Report 9625062 (Version 1)
Quarter: 2013Q3

REPORT INFORMATION
  Report Type: Spontaneous
  Country: US (occurrence: None)
  Receive Date: 20130923
  Receipt Date: 20130923
  Transmission Date: 20140515
  Serious: Yes (Other)
  Sender: FDA-Public Use
  Company Number: FK201203815

PATIENT
  Sex: 0

DRUGS (1)
  1. GENTAMICIN (MANUFACTURER UNKNOWN) [Suspect]
     Indication: PROPHYLAXIS OF NAUSEA AND VOMITING
     Route: 042

REACTIONS (1)
  - Overdose [None]
